FAERS Safety Report 23749745 (Version 7)
Quarter: 2024Q4

REPORT INFORMATION
  Report Type: Report from Study
  Country: CN (occurrence: CN)
  Receive Date: 20240416
  Receipt Date: 20241018
  Transmission Date: 20250114
  Serious: Yes (Hospitalization)
  Sender: ABBVIE
  Company Number: CN-JNJFOC-20240424088

PATIENT
  Age: 47 Year
  Sex: Female
  Weight: 50 kg

DRUGS (11)
  1. IBRUTINIB [Suspect]
     Active Substance: IBRUTINIB
     Indication: Lymphocytic lymphoma
     Dosage: PER 28 DAYS CYCLE
     Route: 048
     Dates: start: 20230803, end: 20230831
  2. IBRUTINIB [Suspect]
     Active Substance: IBRUTINIB
     Indication: Lymphocytic lymphoma
     Dosage: 28 DAYS CONTINUOUS CYCLE
     Route: 048
     Dates: start: 20231002, end: 20240323
  3. IBRUTINIB [Suspect]
     Active Substance: IBRUTINIB
     Indication: Lymphocytic lymphoma
     Dosage: 28 DAYS CONTINUOUS CYCLE
     Route: 048
     Dates: start: 20230913, end: 20231002
  4. IBRUTINIB [Suspect]
     Active Substance: IBRUTINIB
     Indication: Lymphocytic lymphoma
     Route: 048
     Dates: start: 20240413
  5. DEXTROSE [Concomitant]
     Active Substance: DEXTROSE MONOHYDRATE
     Indication: Product used for unknown indication
     Route: 014
  6. ASCORBIC ACID [Concomitant]
     Active Substance: ASCORBIC ACID
     Indication: Product used for unknown indication
  7. GRANULOCYTE-MACROPHAGE COLONY-STIMULATING FACTOR [Concomitant]
     Active Substance: GRANULOCYTE-MACROPHAGE COLONY-STIMULATING FACTOR
     Indication: White blood cell count increased
  8. AMANTADINE HYDROCHLORIDE [Concomitant]
     Active Substance: AMANTADINE HYDROCHLORIDE
     Indication: Product used for unknown indication
     Dates: start: 20240321
  9. CEFIXIME [Concomitant]
     Active Substance: CEFIXIME
     Indication: Product used for unknown indication
     Route: 048
     Dates: start: 20240323
  10. ACETAMINOPHEN [Concomitant]
     Active Substance: ACETAMINOPHEN
     Indication: Product used for unknown indication
     Dates: start: 20240321
  11. ROXATIDINE ACETATE HYDROCHLORIDE [Concomitant]
     Active Substance: ROXATIDINE ACETATE HYDROCHLORIDE
     Indication: Antacid therapy

REACTIONS (3)
  - Bronchoalveolar lavage [Unknown]
  - Pneumonia bacterial [Recovered/Resolved]
  - Pneumonia viral [Recovered/Resolved]

NARRATIVE: CASE EVENT DATE: 20240328
